FAERS Safety Report 7583969-6 (Version None)
Quarter: 2011Q2

REPORT INFORMATION
  Report Type: 
  Country: None (occurrence: None)
  Receive Date: 20110623
  Receipt Date: 20110613
  Transmission Date: 20111010
  Serious: Yes (Death, Life-Threatening, Hospitalization, Disabling, Other)
  Sender: FDA-Public Use
  Company Number: 2010AC000433

PATIENT
  Age: 88 Year
  Sex: Female

DRUGS (47)
  1. SENOKOT [Concomitant]
  2. LASIX [Concomitant]
  3. AMIODARONE HCL [Concomitant]
  4. AUGMENTIN '125' [Concomitant]
  5. HYDRALAZINE HCL [Concomitant]
  6. POTASSIUM CHLORIDE [Concomitant]
  7. LEVAQUIN [Concomitant]
  8. ZOFRAN [Concomitant]
  9. PROAMATINE [Concomitant]
  10. SODIUM PHOSPHATES [Concomitant]
  11. DULCOLAX [Concomitant]
  12. FERROUS SULFATE TAB [Concomitant]
  13. SINGULAIR [Concomitant]
  14. NYSTATIN [Concomitant]
  15. COREG [Concomitant]
  16. MIRALAX [Concomitant]
  17. ARIMIDEX [Concomitant]
  18. MUCINEX [Concomitant]
  19. TYLENOL-500 [Concomitant]
  20. NEXIUM [Concomitant]
  21. ATIVAN [Concomitant]
  22. DOBUTAMINE HCL [Concomitant]
  23. DIGOXIN [Suspect]
     Indication: ATRIAL FIBRILLATION
     Dosage: IV
     Route: 042
     Dates: start: 20070611, end: 20070601
  24. PRILOSEC [Concomitant]
  25. SYNTHROID [Concomitant]
  26. POTASSIUM CHLORIDE [Concomitant]
  27. ALBUTEROL INHALER [Concomitant]
  28. LEXAPRO [Concomitant]
  29. LOVENOX [Concomitant]
  30. COUMADIN [Concomitant]
  31. MULTI-VITAMIN [Concomitant]
  32. ASPIRIN [Concomitant]
  33. ISOSORBIDE DINITRATE [Concomitant]
  34. ROXANOL [Concomitant]
  35. ATROVENT [Concomitant]
  36. OXYGEN [Concomitant]
  37. HEPARIN [Concomitant]
  38. MEVACOR [Concomitant]
  39. TRAZODONE HCL [Concomitant]
  40. MOM [Concomitant]
  41. LISINOPRIL [Concomitant]
  42. NITRO-BID OINTMENT [Concomitant]
  43. AMOXICILLIN [Concomitant]
  44. TOPROL-XL [Concomitant]
  45. POLYETHYLENE GLYCOL [Concomitant]
  46. DIGOXIN [Suspect]
     Dosage: 0.125 MG;QD;PO
     Route: 048
     Dates: start: 20070601, end: 20080501
  47. CARDIZEM [Concomitant]

REACTIONS (49)
  - INJURY [None]
  - LEFT VENTRICULAR DYSFUNCTION [None]
  - PULMONARY HYPERTENSION [None]
  - ATELECTASIS [None]
  - BLOOD GLUCOSE INCREASED [None]
  - CARDIAC FAILURE CONGESTIVE [None]
  - VENTRICULAR EXTRASYSTOLES [None]
  - NECK PAIN [None]
  - PLEURAL EFFUSION [None]
  - ISCHAEMIC CARDIOMYOPATHY [None]
  - ESCHERICHIA INFECTION [None]
  - COUGH [None]
  - BLOOD SODIUM DECREASED [None]
  - CARDIO-RESPIRATORY ARREST [None]
  - LEFT VENTRICULAR HYPERTROPHY [None]
  - ODYNOPHAGIA [None]
  - DEHYDRATION [None]
  - RENAL FAILURE CHRONIC [None]
  - EJECTION FRACTION DECREASED [None]
  - TOXICITY TO VARIOUS AGENTS [None]
  - CULTURE URINE POSITIVE [None]
  - ANHEDONIA [None]
  - CHEST DISCOMFORT [None]
  - WHEEZING [None]
  - SINUSITIS [None]
  - MALNUTRITION [None]
  - BRONCHITIS [None]
  - NEPHROSCLEROSIS [None]
  - TRICUSPID VALVE INCOMPETENCE [None]
  - HIATUS HERNIA [None]
  - METASTATIC NEOPLASM [None]
  - NAUSEA [None]
  - GLOMERULAR FILTRATION RATE DECREASED [None]
  - CARDIOMEGALY [None]
  - VOMITING [None]
  - BLOOD CHLORIDE DECREASED [None]
  - RENAL FAILURE ACUTE [None]
  - ANXIETY [None]
  - ATRIAL FIBRILLATION [None]
  - HYPONATRAEMIA [None]
  - ATRIOVENTRICULAR BLOCK FIRST DEGREE [None]
  - PAIN [None]
  - DYSPHAGIA [None]
  - BLOOD ANTIDIURETIC HORMONE INCREASED [None]
  - MITRAL VALVE INCOMPETENCE [None]
  - DIARRHOEA [None]
  - BLOOD POTASSIUM INCREASED [None]
  - BRAIN NATRIURETIC PEPTIDE INCREASED [None]
  - AORTIC DILATATION [None]
